FAERS Safety Report 9055236 (Version 1)
Quarter: 2013Q1

REPORT INFORMATION
  Report Type: Spontaneous
  Country: US (occurrence: US)
  Receive Date: 20130206
  Receipt Date: 20130206
  Transmission Date: 20140127
  Serious: Yes (Hospitalization, Other)
  Sender: FDA-Public Use
  Company Number: US-009507513-1112USA00931

PATIENT
  Sex: Female
  Weight: 42.64 kg

DRUGS (5)
  1. FOSAMAX [Suspect]
     Indication: OSTEOPOROSIS
     Dosage: 70 MG, QW
     Route: 048
     Dates: start: 2001, end: 200803
  2. FOSAMAX [Suspect]
     Indication: OSTEOPOROSIS
     Dosage: 70 MG, QW
     Route: 048
  3. ALENDRONATE SODIUM [Suspect]
     Dosage: 70 MG, UNK
  4. NEXIUM [Concomitant]
     Indication: GASTROOESOPHAGEAL REFLUX DISEASE
     Route: 048
     Dates: start: 1999
  5. LUMIGAN [Concomitant]
     Indication: GLAUCOMA
     Route: 048
     Dates: start: 1996

REACTIONS (30)
  - Femur fracture [Unknown]
  - Wrist fracture [Unknown]
  - Fall [Unknown]
  - Hypertension [Unknown]
  - Oral disorder [Unknown]
  - Tooth disorder [Unknown]
  - Meniscus injury [Unknown]
  - Bursitis [Not Recovered/Not Resolved]
  - Gait disturbance [Recovering/Resolving]
  - Carotid artery stenosis [Unknown]
  - Cerebral small vessel ischaemic disease [Unknown]
  - Allergy to vaccine [Unknown]
  - Asthma [Unknown]
  - Asthma [Recovering/Resolving]
  - Chronic obstructive pulmonary disease [Recovering/Resolving]
  - Coronary artery disease [Unknown]
  - Intervertebral disc degeneration [Unknown]
  - Osteoarthritis [Unknown]
  - Herpes zoster [Unknown]
  - Nasal disorder [Unknown]
  - Nasal septum disorder [Unknown]
  - Fall [Unknown]
  - Hyperlipidaemia [Unknown]
  - Cataract [Unknown]
  - Cataract [Unknown]
  - Vertigo [Unknown]
  - Neck pain [Unknown]
  - Drug hypersensitivity [Unknown]
  - Headache [Unknown]
  - Arthralgia [Not Recovered/Not Resolved]
